FAERS Safety Report 9174524 (Version 3)
Quarter: 2013Q2

REPORT INFORMATION
  Report Type: Spontaneous
  Country: IE (occurrence: IE)
  Receive Date: 20130320
  Receipt Date: 20130521
  Transmission Date: 20140414
  Serious: Yes (Other)
  Sender: FDA-Public Use
  Company Number: PHFR2012IE001323

PATIENT
  Age: 45 Year
  Sex: Female

DRUGS (3)
  1. CLOZARIL [Suspect]
     Indication: SCHIZOPHRENIA
     Dosage: 250 MG, (AT 50MG AND 200MG DOSE)
     Route: 048
     Dates: start: 20100309
  2. ELTROXIN [Concomitant]
     Indication: THYROIDECTOMY
     Dosage: 150 MG, UNK
  3. ELTROXIN [Concomitant]
     Dosage: 175 MG, UNK
     Route: 048

REACTIONS (3)
  - Normochromic normocytic anaemia [Unknown]
  - Iron deficiency [Unknown]
  - Haemoglobin decreased [Recovered/Resolved]
